FAERS Safety Report 14157524 (Version 12)
Quarter: 2018Q2

REPORT INFORMATION
  Report Type: Report from Study
  Country: US (occurrence: US)
  Receive Date: 20171103
  Receipt Date: 20180528
  Transmission Date: 20180711
  Serious: Yes (Life-Threatening, Hospitalization)
  Sender: FDA-Public Use
  Company Number: PHHY2017US161533

PATIENT
  Age: 5 Year
  Sex: Male
  Weight: 20 kg

DRUGS (20)
  1. CICLOSPORIN [Suspect]
     Active Substance: CYCLOSPORINE
     Indication: IMMUNOSUPPRESSANT DRUG THERAPY
  2. CICLOSPORIN [Suspect]
     Active Substance: CYCLOSPORINE
     Indication: SERUM FERRITIN INCREASED
  3. KINERET [Suspect]
     Active Substance: ANAKINRA
     Indication: INFLUENZA
     Dosage: 100 MG, QD
     Route: 065
     Dates: start: 20170213, end: 20170324
  4. KINERET [Suspect]
     Active Substance: ANAKINRA
     Indication: DIARRHOEA
  5. CICLOSPORIN [Suspect]
     Active Substance: CYCLOSPORINE
     Indication: INFLUENZA
  6. KINERET [Suspect]
     Active Substance: ANAKINRA
     Indication: SEPSIS
  7. ACTEMRA [Suspect]
     Active Substance: TOCILIZUMAB
     Dosage: 320 MG, QD
     Route: 065
     Dates: start: 20170713
  8. CICLOSPORIN [Suspect]
     Active Substance: CYCLOSPORINE
     Indication: HEPATOMEGALY
  9. CICLOSPORIN [Suspect]
     Active Substance: CYCLOSPORINE
     Indication: HISTIOCYTOSIS HAEMATOPHAGIC
     Dosage: 70 MG, QD
     Route: 065
     Dates: start: 20170701
  10. CICLOSPORIN [Suspect]
     Active Substance: CYCLOSPORINE
     Indication: DEHYDRATION
  11. KINERET [Suspect]
     Active Substance: ANAKINRA
     Indication: STILL^S DISEASE
     Dosage: 60 MG, QD
     Route: 065
     Dates: start: 20120701, end: 20130101
  12. KINERET [Suspect]
     Active Substance: ANAKINRA
     Indication: HISTIOCYTOSIS HAEMATOPHAGIC
     Dosage: 100 MG, QD
     Route: 065
     Dates: start: 20160324, end: 20170127
  13. CICLOSPORIN [Suspect]
     Active Substance: CYCLOSPORINE
     Indication: DIARRHOEA
  14. ILARIS [Suspect]
     Active Substance: CANAKINUMAB
     Indication: STILL^S DISEASE
     Route: 065
  15. KINERET [Suspect]
     Active Substance: ANAKINRA
     Indication: SERUM FERRITIN INCREASED
     Dosage: 100 MG, QD
     Route: 065
     Dates: start: 20170324, end: 20170602
  16. KINERET [Suspect]
     Active Substance: ANAKINRA
     Indication: HEPATOMEGALY
     Dosage: 100 MG, QD
     Route: 065
     Dates: start: 20170602, end: 20170701
  17. KINERET [Suspect]
     Active Substance: ANAKINRA
     Indication: DEHYDRATION
  18. ACTEMRA [Suspect]
     Active Substance: TOCILIZUMAB
     Indication: JUVENILE IDIOPATHIC ARTHRITIS
     Dosage: UNK
     Route: 065
  19. CICLOSPORIN [Suspect]
     Active Substance: CYCLOSPORINE
     Indication: JUVENILE IDIOPATHIC ARTHRITIS
     Dosage: 45 MG, QD
     Route: 048
     Dates: start: 20161030, end: 20170701
  20. CICLOSPORIN [Suspect]
     Active Substance: CYCLOSPORINE
     Indication: SEPSIS

REACTIONS (14)
  - Influenza [Recovering/Resolving]
  - Hepatomegaly [Recovering/Resolving]
  - Diarrhoea [Recovering/Resolving]
  - Product use in unapproved indication [Unknown]
  - Histiocytosis haematophagic [Recovered/Resolved]
  - Histiocytosis haematophagic [Recovered/Resolved]
  - Condition aggravated [Recovered/Resolved]
  - Rash [Recovering/Resolving]
  - Pyrexia [Recovering/Resolving]
  - Condition aggravated [Recovered/Resolved]
  - Sepsis [Recovering/Resolving]
  - Serum ferritin increased [Recovering/Resolving]
  - Dehydration [Recovering/Resolving]
  - Joint swelling [Recovering/Resolving]

NARRATIVE: CASE EVENT DATE: 20170314
